FAERS Safety Report 24970917 (Version 1)
Quarter: 2025Q1

REPORT INFORMATION
  Report Type: Report from Study
  Country: CA (occurrence: CA)
  Receive Date: 20250214
  Receipt Date: 20250214
  Transmission Date: 20250409
  Serious: Yes (Other)
  Sender: CURRAX PHARMACEUTICALS
  Company Number: CA-BAUSCH-BL-2025-000140

PATIENT
  Age: 60 Year
  Sex: Female

DRUGS (6)
  1. CONTRAVE [Suspect]
     Active Substance: BUPROPION HYDROCHLORIDE\NALTREXONE HYDROCHLORIDE
     Indication: Weight decreased
     Dosage: 90/8 MG, 1 TAB AM
     Route: 048
     Dates: start: 20241225, end: 20241231
  2. CONTRAVE [Suspect]
     Active Substance: BUPROPION HYDROCHLORIDE\NALTREXONE HYDROCHLORIDE
     Dosage: 90/8 MG, 1 TAB AM + 1 TAB PM
     Route: 048
     Dates: start: 20250101
  3. ROSUVASTATIN [Concomitant]
     Active Substance: ROSUVASTATIN
     Indication: Blood cholesterol
     Dosage: 10 MG,1 IN 1 D
     Route: 048
     Dates: start: 2024
  4. RABEPRAZOLE SODIUM [Concomitant]
     Active Substance: RABEPRAZOLE SODIUM
     Indication: Gastrooesophageal reflux disease
     Dosage: 1 TAB AM + 1 TAB PM (20 MG,1 IN 12 HR)
     Route: 048
  5. B12 [Concomitant]
     Indication: Hypovitaminosis
     Dosage: 1000 MCG,1 IN 1 D
     Route: 048
  6. IRON [Concomitant]
     Active Substance: IRON
     Indication: Hypovitaminosis
     Dosage: 306 MG,1 IN 1 D
     Route: 048

REACTIONS (4)
  - Cardiac flutter [Not Recovered/Not Resolved]
  - Head discomfort [Not Recovered/Not Resolved]
  - Headache [Not Recovered/Not Resolved]
  - Hot flush [Not Recovered/Not Resolved]

NARRATIVE: CASE EVENT DATE: 20241225
